FAERS Safety Report 10712156 (Version 2)
Quarter: 2015Q2

REPORT INFORMATION
  Report Type: Report from Study
  Country: US (occurrence: US)
  Receive Date: 20150114
  Receipt Date: 20150522
  Transmission Date: 20150821
  Serious: Yes (Death, Life-Threatening, Hospitalization)
  Sender: FDA-Public Use
  Company Number: US-ACTELION-A-NJ2014-110608

PATIENT
  Age: 81 Year
  Sex: Male

DRUGS (20)
  1. TRACLEER [Suspect]
     Active Substance: BOSENTAN\BOSENTAN MONOHYDRATE
     Indication: PULMONARY HYPERTENSION
     Dosage: 62.5 MG, BID
     Route: 048
     Dates: start: 20141212, end: 20150314
  2. LANTUS [Concomitant]
     Active Substance: INSULIN GLARGINE
     Dosage: 7 U, BID
     Route: 058
  3. COUMADIN [Concomitant]
     Active Substance: WARFARIN SODIUM
     Dosage: 3 MG, UNK
  4. NOVOLOG [Concomitant]
     Active Substance: INSULIN ASPART
     Dosage: 15 U, TID WITH MEALS AND BEDTIME AS NEEDED PER SLIDING SCALE
     Route: 058
  5. LYRICA [Concomitant]
     Active Substance: PREGABALIN
     Dosage: 75 MG, PRN
     Route: 048
  6. BUMEX [Concomitant]
     Active Substance: BUMETANIDE
     Dosage: 1 MG, BID
     Route: 048
  7. SPIRIVA [Concomitant]
     Active Substance: TIOTROPIUM BROMIDE MONOHYDRATE
     Dosage: 18 MCG, INHALED CAPSULE 1 PUFF QD
     Route: 055
  8. RIOCIGUAT [Suspect]
     Active Substance: RIOCIGUAT
     Indication: PULMONARY HYPERTENSION
     Dosage: 0.5 MG, BID
     Route: 065
     Dates: start: 20141212, end: 20150314
  9. JALYN [Concomitant]
     Active Substance: DUTASTERIDE\TAMSULOSIN HYDROCHLORIDE
     Dosage: UNK, QD
     Route: 048
  10. METOPROLOL [Concomitant]
     Active Substance: METOPROLOL
     Dosage: 25 MG, 0.5 TABLET BID
     Route: 048
  11. NASONEX [Concomitant]
     Active Substance: MOMETASONE FUROATE
     Dosage: UNK, 2 SPRAYS EACH NOSTRIL QD
  12. NEPHROCAPS [Concomitant]
     Active Substance: ASCORBIC ACID\BIOTIN\CYANOCOBALAMIN\FOLIC ACID\NIACIN\PANTOTHENIC ACID\PYRIDOXINE\RIBOFLAVIN\THIAMINE
     Dosage: UNK, QD
  13. GEMFIBROZIL. [Concomitant]
     Active Substance: GEMFIBROZIL
     Dosage: 600 MG, BID
     Route: 048
  14. MIRALAX [Concomitant]
     Active Substance: POLYETHYLENE GLYCOL 3350
     Dosage: 17 G, QD
     Route: 048
  15. CALCITRIOL. [Concomitant]
     Active Substance: CALCITRIOL
     Dosage: 0.25 MCG, QD
     Route: 048
  16. POTASSIUM CHLORIDE. [Concomitant]
     Active Substance: POTASSIUM CHLORIDE
     Route: 048
  17. VENTAVIS [Concomitant]
     Active Substance: ILOPROST
  18. ALLOPURINOL. [Concomitant]
     Active Substance: ALLOPURINOL
     Dosage: 100 MG, QD
  19. XOPENEX [Concomitant]
     Active Substance: LEVALBUTEROL HYDROCHLORIDE
     Dosage: UNK, EVERY 8 HOURS PRN
  20. PREDNISONE. [Concomitant]
     Active Substance: PREDNISONE
     Dosage: 20 MG, 1 TAB QD FOR 3 DAYS THEN 5MG DAILY
     Route: 048

REACTIONS (14)
  - Haemorrhage [Recovering/Resolving]
  - Fluid overload [Unknown]
  - Oxygen saturation decreased [Unknown]
  - Packed red blood cell transfusion [Unknown]
  - Weight increased [Recovering/Resolving]
  - Dyspnoea [Recovering/Resolving]
  - Disease progression [Fatal]
  - Anaemia [Not Recovered/Not Resolved]
  - Arteriovenous malformation [Unknown]
  - Hypoxia [Recovered/Resolved]
  - Cardiac failure congestive [Recovering/Resolving]
  - Haemoglobin decreased [Unknown]
  - Pulmonary hypertension [Fatal]
  - Catheterisation cardiac [Unknown]

NARRATIVE: CASE EVENT DATE: 20141217
